FAERS Safety Report 7743024-9 (Version None)
Quarter: 2011Q3

REPORT INFORMATION
  Report Type: 
  Country: None (occurrence: None)
  Receive Date: 20110901
  Receipt Date: 20110822
  Transmission Date: 20111222
  Serious: Yes (Hospitalization, Disabling, Other)
  Sender: FDA-Public Use
  Company Number: 2010SP028233

PATIENT
  Age: 45 Year
  Sex: Female
  Weight: 57.6068 kg

DRUGS (8)
  1. ALLEGRA [Concomitant]
  2. PRENATAL VITAMINS [Concomitant]
  3. CYMBALTA [Suspect]
     Indication: ANXIETY
     Dosage: 60 MG;BID;PO, 60 MG;QD;PO
     Route: 048
     Dates: start: 20080701
  4. CYMBALTA [Suspect]
     Indication: MAJOR DEPRESSION
     Dosage: 60 MG;BID;PO, 60 MG;QD;PO
     Route: 048
     Dates: start: 20080701
  5. RHINOCORT [Concomitant]
  6. NUVARING [Suspect]
     Indication: MENSTRUAL DISORDER
     Dosage: VAG
     Route: 067
     Dates: start: 20061201, end: 20080503
  7. NUVARING [Suspect]
     Indication: GASTRIC BYPASS
     Dosage: VAG
     Route: 067
     Dates: start: 20061201, end: 20080503
  8. NORVASC [Suspect]
     Indication: HYPERTENSION
     Dosage: 10 MG;QD;PO
     Route: 048
     Dates: start: 20080511, end: 20080901

REACTIONS (47)
  - PRESYNCOPE [None]
  - VARICOSE VEIN [None]
  - DRUG HYPERSENSITIVITY [None]
  - HAEMORRHAGE INTRACRANIAL [None]
  - FALL [None]
  - ENCEPHALOMALACIA [None]
  - HERNIA [None]
  - CONVULSION [None]
  - VITAMIN B12 DEFICIENCY [None]
  - MAJOR DEPRESSION [None]
  - STRESS [None]
  - PHOTOSENSITIVITY REACTION [None]
  - LIVER FUNCTION TEST ABNORMAL [None]
  - HAEMANGIOMA OF LIVER [None]
  - MENTAL DISORDER [None]
  - WOUND DEHISCENCE [None]
  - GAIT DISTURBANCE [None]
  - HYPERGLYCAEMIA [None]
  - GRAND MAL CONVULSION [None]
  - FATIGUE [None]
  - SLEEP APNOEA SYNDROME [None]
  - VAGINAL HAEMORRHAGE [None]
  - HYPERHIDROSIS [None]
  - SCAR [None]
  - CONTUSION [None]
  - HYPERTENSION [None]
  - PRURITUS [None]
  - SEASONAL ALLERGY [None]
  - SWELLING [None]
  - EXCESSIVE SKIN [None]
  - OSTEOPOROSIS [None]
  - ANAEMIA [None]
  - DIARRHOEA [None]
  - CAROTID ARTERY ANEURYSM [None]
  - SLEEP DISORDER [None]
  - COITAL BLEEDING [None]
  - HUMERUS FRACTURE [None]
  - METRORRHAGIA [None]
  - EMOTIONAL DISORDER [None]
  - ALOPECIA [None]
  - RASH [None]
  - MUSCULOSKELETAL PAIN [None]
  - MENSTRUATION IRREGULAR [None]
  - ANXIETY [None]
  - COGNITIVE DISORDER [None]
  - MALABSORPTION [None]
  - INFLUENZA [None]
